FAERS Safety Report 6608332-3 (Version None)
Quarter: 2010Q1

REPORT INFORMATION
  Report Type: 
  Country: None (occurrence: None)
  Receive Date: 20100301
  Receipt Date: 20100222
  Transmission Date: 20100710
  Serious: Yes (Hospitalization)
  Sender: FDA-Public Use
  Company Number: PE-ELI_LILLY_AND_COMPANY-PE201002001818

PATIENT
  Age: 43 Year
  Sex: Male

DRUGS (3)
  1. BYETTA [Suspect]
     Dosage: 10 UG, 2/D
     Route: 058
     Dates: start: 20090919, end: 20091101
  2. GLUCOPHAGE [Concomitant]
     Dosage: UNK, UNKNOWN
     Route: 065
  3. HUMULIN N [Concomitant]
     Dosage: UNK, UNKNOWN
     Route: 065
     Dates: start: 20090201

REACTIONS (4)
  - GASTRITIS [None]
  - NAUSEA [None]
  - OFF LABEL USE [None]
  - VOMITING [None]
